FAERS Safety Report 23317592 (Version 1)
Quarter: 2023Q4

REPORT INFORMATION
  Report Type: Spontaneous
  Country: US (occurrence: None)
  Receive Date: 20231219
  Receipt Date: 20231219
  Transmission Date: 20240109
  Serious: No
  Sender: FDA-Public Use
  Company Number: US-ROCHE-3331696

PATIENT
  Age: 61 Year
  Sex: Male
  Weight: 54.026 kg

DRUGS (6)
  1. HEMLIBRA [Suspect]
     Active Substance: EMICIZUMAB-KXWH
     Indication: Factor VIII deficiency
     Dosage: AUG/2012- 180 MG IN 14 DAYS
     Route: 058
     Dates: start: 2000, end: 2001
  2. HEMLIBRA [Suspect]
     Active Substance: EMICIZUMAB-KXWH
     Route: 058
     Dates: start: 202302
  3. HEMLIBRA [Suspect]
     Active Substance: EMICIZUMAB-KXWH
     Route: 058
  4. BENADRYL [Concomitant]
     Active Substance: DIPHENHYDRAMINE HYDROCHLORIDE
     Indication: Pruritus
     Route: 048
  5. PERCOCET [Concomitant]
     Active Substance: ACETAMINOPHEN\OXYCODONE HYDROCHLORIDE
     Route: 048
  6. CELEBREX [Concomitant]
     Active Substance: CELECOXIB
     Indication: Pain
     Route: 048

REACTIONS (9)
  - Product complaint [Unknown]
  - Product quality issue [Unknown]
  - Pruritus [Not Recovered/Not Resolved]
  - Arthralgia [Not Recovered/Not Resolved]
  - Rash papular [Not Recovered/Not Resolved]
  - Off label use [Unknown]
  - Haemarthrosis [Unknown]
  - Rash [Unknown]
  - Swelling [Unknown]
